FAERS Safety Report 25447920 (Version 1)
Quarter: 2025Q2

REPORT INFORMATION
  Report Type: Spontaneous
  Country: ES (occurrence: ES)
  Receive Date: 20250617
  Receipt Date: 20250617
  Transmission Date: 20250716
  Serious: Yes (Hospitalization, Other)
  Sender: PFIZER
  Company Number: None

PATIENT
  Age: 61 Year
  Sex: Female

DRUGS (13)
  1. DOXORUBICIN HYDROCHLORIDE [Suspect]
     Active Substance: DOXORUBICIN HYDROCHLORIDE
     Indication: Invasive lobular breast carcinoma
     Route: 042
     Dates: start: 20250314
  2. CYCLOPHOSPHAMIDE [Suspect]
     Active Substance: CYCLOPHOSPHAMIDE
     Indication: Invasive lobular breast carcinoma
     Route: 042
     Dates: start: 20250314
  3. DEXAMETHASONE [Concomitant]
     Active Substance: DEXAMETHASONE
     Dates: start: 20250314
  4. OMEPRAZOL TEVA [OMEPRAZOLE] [Concomitant]
     Dosage: 20 MG, DAILY (EVERY 24 HOURS (H))
     Route: 048
     Dates: start: 20250130
  5. METOCLOPRAMIDA ACCORD [Concomitant]
     Dosage: 10 MG, 3X/DAY (EVERY 8 HOURS)
     Route: 048
     Dates: start: 20250130
  6. METFORMIN HYDROCHLORIDE\SITAGLIPTIN PHOSPHATE [Concomitant]
     Active Substance: METFORMIN HYDROCHLORIDE\SITAGLIPTIN PHOSPHATE
     Dosage: 1 DF, 2X/DAY (EVERY 12 HOURS)
     Route: 048
     Dates: start: 20120504
  7. PIOGLITAZONA CINFA [Concomitant]
     Dosage: 15 MG, DAILY (EVERY 24 H)
     Route: 048
     Dates: start: 20180111
  8. JARDIANCE [Concomitant]
     Active Substance: EMPAGLIFLOZIN
     Dosage: 10 MG, DAILY (EVERY 24 H)
     Route: 048
     Dates: start: 20160415
  9. AMLODIPINE BESYLATE\OLMESARTAN MEDOXOMIL [Concomitant]
     Active Substance: AMLODIPINE BESYLATE\OLMESARTAN MEDOXOMIL
     Dosage: 1 DF, DAILY (EVERY 24 H)
     Route: 048
     Dates: start: 20120523
  10. ATORVASTATIN CALCIUM [Concomitant]
     Active Substance: ATORVASTATIN CALCIUM
     Dosage: 20 MG, DAILY (EVERY 24 H)
     Route: 048
     Dates: start: 20191104
  11. PARACETAMOL KERN PHARMA [Concomitant]
     Dosage: 1 G, 3X/DAY (EVERY 8 HOURS)
     Route: 048
     Dates: start: 20250130
  12. LORAZEPAM [Concomitant]
     Active Substance: LORAZEPAM
     Dosage: 1 MG, DAILY (EVERY 24 H)
     Route: 048
     Dates: start: 20250228
  13. NASONEX [Concomitant]
     Active Substance: MOMETASONE FUROATE
     Dosage: 4 DF, DAILY (EVERY 24 H)
     Route: 045
     Dates: start: 20151123

REACTIONS (1)
  - Febrile neutropenia [Recovered/Resolved]

NARRATIVE: CASE EVENT DATE: 20250317
